FAERS Safety Report 5060784-9 (Version None)
Quarter: 2006Q3

REPORT INFORMATION
  Report Type: 
  Country: None (occurrence: None)
  Receive Date: 20060719
  Receipt Date: 20060719
  Transmission Date: 20061208
  Serious: Yes (Other)
  Sender: FDA-Public Use
  Company Number: None

PATIENT
  Age: 9 Month
  Sex: Male
  Weight: 9.5255 kg

DRUGS (2)
  1. CEFZIL [Suspect]
     Indication: EAR INFECTION
     Dosage: 1/2 TEASPOON 2X PER DAY ORAL
     Route: 048
     Dates: start: 20060715, end: 20060715
  2. CEFZIL [Suspect]
     Indication: SINUSITIS
     Dosage: 1/2 TEASPOON 2X PER DAY ORAL
     Route: 048
     Dates: start: 20060715, end: 20060715

REACTIONS (5)
  - DYSGEUSIA [None]
  - ORAL DISCOMFORT [None]
  - PHARMACEUTICAL PRODUCT COUNTERFEIT [None]
  - POOR QUALITY DRUG ADMINISTERED [None]
  - VOMITING [None]
